FAERS Safety Report 5512693-6 (Version None)
Quarter: 2007Q4

REPORT INFORMATION
  Report Type: 
  Country: None (occurrence: None)
  Receive Date: 20071107
  Receipt Date: 20071023
  Transmission Date: 20080405
  Serious: Yes (Hospitalization)
  Sender: FDA-Public Use
  Company Number: DSA_30753_2007

PATIENT
  Sex: Female

DRUGS (6)
  1. LORAZEPAM [Suspect]
     Dosage: (NOT THE PRESCRIBED AMOUNT ORAL)
     Route: 048
     Dates: start: 20071010, end: 20071010
  2. DIAZEPAM [Suspect]
     Dosage: 150 MG 1X NOT THE PRESCRIBED AMOUNT. ORAL)
     Route: 048
     Dates: start: 20071010, end: 20071010
  3. PROMETHAZINE [Suspect]
     Dosage: (250 MG 1 X NOT THE PRESCRIBED AMOUNT. ORAL)
     Route: 048
     Dates: start: 20071010, end: 20071010
  4. ZYPREXA [Suspect]
     Dosage: (35 MG 1X NOT THE PRESCRIBED AMOUNT. ORAL)
     Route: 048
     Dates: start: 20071010, end: 20071010
  5. ETHANOL (VODKA - ETHANOL) [Suspect]
     Dosage: (NOT THE PRESCRIBED AMOUNT. ORAL)
     Route: 048
     Dates: start: 20071010, end: 20071010
  6. ATOSIL /00133602/ (ATOSIL - ISOPROMETHAZINE HYDROCHLORIDE) [Suspect]
     Dosage: (NOT THE PRESCRIBED AMOUNT. ORAL)
     Route: 048
     Dates: start: 20071010, end: 20071010

REACTIONS (5)
  - MULTIPLE DRUG OVERDOSE INTENTIONAL [None]
  - RESPIRATORY DEPRESSION [None]
  - SOMNOLENCE [None]
  - SOPOR [None]
  - SUICIDE ATTEMPT [None]
